FAERS Safety Report 5803901-2 (Version None)
Quarter: 2008Q3

REPORT INFORMATION
  Report Type: 
  Country: None (occurrence: None)
  Receive Date: 20080708
  Receipt Date: 20080703
  Transmission Date: 20090109
  Serious: Yes (Other)
  Sender: FDA-Public Use
  Company Number: GB-ABBOTT-08P-167-0460964-00

PATIENT
  Sex: Female

DRUGS (5)
  1. KALETRA [Suspect]
     Indication: ANTIRETROVIRAL THERAPY
     Dosage: DAILY
     Route: 048
     Dates: start: 20060309, end: 20070503
  2. ALUVIA TABLETS [Suspect]
     Indication: ANTIRETROVIRAL THERAPY
     Dosage: DAILY
     Route: 048
     Dates: start: 20070504
  3. EFAVIRENZ [Suspect]
     Indication: ANTIRETROVIRAL THERAPY
     Dosage: DAILY
     Route: 048
     Dates: start: 20060309, end: 20070501
  4. DIDANOSINE [Suspect]
     Indication: ANTIRETROVIRAL THERAPY
     Dosage: DAILY
     Route: 048
     Dates: start: 20060309
  5. ABACAVIR [Suspect]
     Indication: ANTIRETROVIRAL THERAPY
     Dosage: DAILY
     Route: 048
     Dates: start: 20070502

REACTIONS (1)
  - ABORTION SPONTANEOUS [None]
